FAERS Safety Report 8577590-0 (Version None)
Quarter: 2012Q3

REPORT INFORMATION
  Report Type: 
  Country: None (occurrence: None)
  Receive Date: 20120807
  Receipt Date: 20120709
  Transmission Date: 20120928
  Serious: No
  Sender: FDA-Public Use
  Company Number: US-ASTRAZENECA-2012SE23367

PATIENT
  Age: 66 Year
  Sex: Female
  Weight: 54.4 kg

DRUGS (5)
  1. SEROQUEL XR [Suspect]
     Indication: SLEEP DISORDER
     Route: 048
  2. FELODIPINE [Suspect]
     Route: 048
  3. SEROQUEL XR [Suspect]
     Route: 048
     Dates: start: 20110101
  4. SEROQUEL XR [Suspect]
     Indication: BIPOLAR I DISORDER
     Route: 048
  5. SEROQUEL XR [Suspect]
     Route: 048
     Dates: start: 20110101

REACTIONS (7)
  - EYE PAIN [None]
  - TREMOR [None]
  - INSOMNIA [None]
  - OFF LABEL USE [None]
  - DRUG DOSE OMISSION [None]
  - EYE SWELLING [None]
  - INTENTIONAL DRUG MISUSE [None]
